FAERS Safety Report 10392839 (Version 1)
Quarter: 2014Q3

REPORT INFORMATION
  Report Type: Spontaneous
  Country: US (occurrence: None)
  Receive Date: 20140815
  Receipt Date: 20140815
  Transmission Date: 20150326
  Serious: Yes (Other)
  Sender: FDA-Public Use
  Company Number: SYM-2014-24000

PATIENT
  Age: 71 Year
  Sex: Female
  Weight: 71.67 kg

DRUGS (15)
  1. JUXTAPID [Suspect]
     Active Substance: LOMITAPIDE MESYLATE
     Indication: TYPE IIA HYPERLIPIDAEMIA
     Route: 048
     Dates: start: 20140312, end: 201403
  2. MECLOZINE (MECLOZINE) [Concomitant]
  3. PROGESTERONE (PROGESTERONE) [Concomitant]
  4. ASPIRIN. [Concomitant]
     Active Substance: ASPIRIN
  5. NORCO (VICODIN) (PARACETAMOL, HYDROCODONE BITARTRATE) [Concomitant]
  6. EZETIMIBE (EZETIMIBE) [Concomitant]
  7. NAPROXEN (NAPROXEN) [Concomitant]
     Active Substance: NAPROXEN
  8. CARDIZEM CD [Suspect]
     Active Substance: DILTIAZEM HYDROCHLORIDE
     Indication: PRODUCT USED FOR UNKNOWN INDICATION
  9. LEVOTHYROXINE (LEVOTHYROXINE) [Concomitant]
     Active Substance: LEVOTHYROXINE
  10. HYDROCHLOROTHIAZIDE (HYDROCHLOROTHIAZIDE) [Concomitant]
     Active Substance: HYDROCHLOROTHIAZIDE
  11. BIOTIN (BIOTIN) [Concomitant]
  12. LOSARTAN (POTASSIUM) (LOSARTAN POTASSIUM) [Concomitant]
  13. PROGESTERONE (PROGESTERONE) [Concomitant]
  14. DILTIAZEM HYDROCHLORIDE) [Concomitant]
  15. SALBUTAMOL (INHALATION) (SALBUTAMOL) [Concomitant]

REACTIONS (5)
  - Abdominal pain upper [None]
  - Weight decreased [None]
  - Food poisoning [None]
  - Nausea [None]
  - Diarrhoea [None]

NARRATIVE: CASE EVENT DATE: 20140323
